FAERS Safety Report 7632163-9 (Version None)
Quarter: 2011Q3

REPORT INFORMATION
  Report Type: 
  Country: None (occurrence: None)
  Receive Date: 20110725
  Receipt Date: 20110531
  Transmission Date: 20111222
  Serious: No
  Sender: FDA-Public Use
  Company Number: US-BRISTOL-MYERS SQUIBB COMPANY-15770050

PATIENT
  Age: 88 Year
  Sex: Female
  Weight: 55 kg

DRUGS (5)
  1. AMLODIPINE [Concomitant]
     Indication: CARDIAC DISORDER
  2. SOTALOL HCL [Concomitant]
     Indication: CARDIAC DISORDER
  3. SIMVASTATIN [Concomitant]
     Indication: BLOOD CHOLESTEROL
  4. COUMADIN [Suspect]
     Indication: ATRIAL FLUTTER
     Dosage: ALTERNATE 1 TAB WITH 1/2 TAB OF OD STARTED PRIOR TO 2006
     Route: 048
  5. LISINOPRIL [Concomitant]
     Indication: HYPERTENSION

REACTIONS (3)
  - GINGIVAL BLEEDING [None]
  - INCORRECT DOSE ADMINISTERED [None]
  - INFLUENZA [None]
